FAERS Safety Report 9380518 (Version 1)
Quarter: 2013Q3

REPORT INFORMATION
  Report Type: Spontaneous
  Country: US (occurrence: US)
  Receive Date: 20130702
  Receipt Date: 20130702
  Transmission Date: 20140515
  Serious: No
  Sender: FDA-Public Use
  Company Number: US-009507513-1307USA000737

PATIENT
  Age: 38 Year
  Sex: Female

DRUGS (4)
  1. SAPHRIS [Suspect]
     Indication: BIPOLAR I DISORDER
     Dosage: 10 MG, QPM
     Route: 060
     Dates: start: 20130530, end: 2013
  2. CELEXA [Concomitant]
  3. LAMICTAL [Concomitant]
  4. KLONOPIN [Concomitant]

REACTIONS (1)
  - Hypoaesthesia oral [Recovered/Resolved]
